FAERS Safety Report 8558897-X (Version None)
Quarter: 2012Q3

REPORT INFORMATION
  Report Type: 
  Country: None (occurrence: None)
  Receive Date: 20120801
  Receipt Date: 20120726
  Transmission Date: 20120928
  Serious: Yes (Life-Threatening)
  Sender: FDA-Public Use
  Company Number: IT-TEVA-350485ISR

PATIENT
  Sex: Male

DRUGS (4)
  1. FLUOROURACIL [Concomitant]
     Dates: start: 20120308, end: 20120705
  2. FLUOROURACIL [Concomitant]
     Dates: start: 20120308, end: 20120705
  3. OXALIPLATIN [Suspect]
     Dosage: 85 MG/M2;
     Route: 042
     Dates: start: 20120308, end: 20120705
  4. ACIDO FOLINICO [Concomitant]
     Indication: COLON CANCER
     Dates: start: 20120308, end: 20120705

REACTIONS (5)
  - LOSS OF CONSCIOUSNESS [None]
  - DYSPNOEA [None]
  - HYPOTENSION [None]
  - MIOSIS [None]
  - TRISMUS [None]
